FAERS Safety Report 10968868 (Version 1)
Quarter: 2015Q1

REPORT INFORMATION
  Report Type: Report from Study
  Country: FR (occurrence: FR)
  Receive Date: 20150331
  Receipt Date: 20150331
  Transmission Date: 20150721
  Serious: Yes (Hospitalization, Other)
  Sender: FDA-Public Use
  Company Number: FR-UCBSA-2014001734

PATIENT
  Age: 43 Year
  Sex: Male
  Weight: 75 kg

DRUGS (7)
  1. SODIUM OXYBATE [Suspect]
     Active Substance: SODIUM OXYBATE
     Indication: NARCOLEPSY
     Dosage: 2.25 G, 2X/DAY (BID)
     Route: 048
     Dates: start: 20140505, end: 2014
  2. INEXIUM [Concomitant]
     Active Substance: ESOMEPRAZOLE
     Indication: PRODUCT USED FOR UNKNOWN INDICATION
     Dosage: RARE INTAKES
  3. MODIODAL [Concomitant]
     Active Substance: MODAFINIL
     Indication: CATAPLEXY
  4. SODIUM OXYBATE [Suspect]
     Active Substance: SODIUM OXYBATE
     Dosage: 4.5 G, 2X/DAY (BID);
     Route: 048
     Dates: start: 20140616, end: 20150205
  5. SODIUM OXYBATE [Suspect]
     Active Substance: SODIUM OXYBATE
     Dosage: 4.5 G, 2X/DAY (BID);
     Route: 048
     Dates: start: 20150211
  6. MODIODAL [Concomitant]
     Active Substance: MODAFINIL
     Indication: NARCOLEPSY
  7. SODIUM OXYBATE [Suspect]
     Active Substance: SODIUM OXYBATE
     Indication: CATAPLEXY
     Dosage: 3.75 G, 2X/DAY (BID), NIGHTLY
     Route: 048
     Dates: start: 20140605, end: 20140615

REACTIONS (15)
  - Palpitations [Recovered/Resolved]
  - Emergency care [Recovered/Resolved]
  - Epistaxis [Unknown]
  - Dyskinesia [Recovered/Resolved]
  - Visual impairment [Recovered/Resolved]
  - Pain in extremity [Recovered/Resolved]
  - Drug dose omission [Unknown]
  - Fall [Recovered/Resolved]
  - Tendon rupture [Recovered/Resolved]
  - Fatigue [Recovered/Resolved]
  - Snoring [Recovered/Resolved]
  - Vomiting [Recovered/Resolved]
  - Vertigo [Recovered/Resolved]
  - Hospitalisation [Recovered/Resolved]
  - Paraesthesia [Recovered/Resolved]

NARRATIVE: CASE EVENT DATE: 2014
